FAERS Safety Report 22284839 (Version 1)
Quarter: 2023Q2

REPORT INFORMATION
  Report Type: Spontaneous
  Country: US (occurrence: None)
  Receive Date: 20230503
  Receipt Date: 20230503
  Transmission Date: 20230722
  Serious: No
  Sender: FDA-Public Use
  Company Number: None

PATIENT
  Age: 73 Year
  Sex: Female
  Weight: 112.5 kg

DRUGS (7)
  1. CONTRAVE [Suspect]
     Active Substance: BUPROPION HYDROCHLORIDE\NALTREXONE HYDROCHLORIDE
     Indication: Weight decreased
     Dosage: OTHER QUANTITY : 8 TABLET(S);?FREQUENCY : EVERY 8 HOURS;?
     Route: 048
  2. WARFARIN [Concomitant]
     Active Substance: WARFARIN
  3. POTASSIUM [Concomitant]
     Active Substance: POTASSIUM
  4. ADEMPAS [Concomitant]
     Active Substance: RIOCIGUAT
  5. LASIX [Concomitant]
     Active Substance: FUROSEMIDE
  6. TYLENOL [Concomitant]
     Active Substance: ACETAMINOPHEN
  7. eye vitamin [Concomitant]

REACTIONS (4)
  - Headache [None]
  - Tinnitus [None]
  - Taste disorder [None]
  - Dizziness [None]

NARRATIVE: CASE EVENT DATE: 19230410
